FAERS Safety Report 25138088 (Version 1)
Quarter: 2025Q1

REPORT INFORMATION
  Report Type: Spontaneous
  Country: US (occurrence: US)
  Receive Date: 20250329
  Receipt Date: 20250329
  Transmission Date: 20250408
  Serious: No
  Sender: SANOFI AVENTIS
  Company Number: US-SANOFI-02462575

PATIENT
  Age: 48 Year
  Sex: Male

DRUGS (1)
  1. DUPIXENT [Suspect]
     Active Substance: DUPILUMAB
     Dates: start: 202407

REACTIONS (4)
  - Periorbital swelling [Unknown]
  - Keratitis [Unknown]
  - Conjunctivitis [Unknown]
  - Hypersensitivity [Unknown]
